FAERS Safety Report 6847300-3 (Version None)
Quarter: 2010Q3

REPORT INFORMATION
  Report Type: 
  Country: None (occurrence: None)
  Receive Date: 20100713
  Receipt Date: 20100624
  Transmission Date: 20110219
  Serious: Yes (Other)
  Sender: FDA-Public Use
  Company Number: 1000014694

PATIENT
  Age: 31 Year
  Sex: Male
  Weight: 97 kg

DRUGS (6)
  1. LEXAPRO [Suspect]
     Indication: AGORAPHOBIA
     Dosage: 10 MG (10 MG, 1 IN 1 D), ORAL
     Route: 048
     Dates: start: 20080702, end: 20100102
  2. LEXAPRO [Suspect]
     Indication: AGORAPHOBIA
     Dosage: 20 MG (20 MG, 1 IN 1 D), ORAL
     Route: 048
     Dates: start: 20100103, end: 20100630
  3. LEXAPRO [Suspect]
     Indication: AGORAPHOBIA
     Dosage: 10 MG (10 MG, 1 IN 1 D), ORAL
     Route: 048
     Dates: start: 20100701
  4. VALERIAN OFFICINALIS [Concomitant]
  5. CLONAZEPAM [Concomitant]
  6. ZOLPIDEM [Concomitant]

REACTIONS (4)
  - ANXIETY [None]
  - CONDITION AGGRAVATED [None]
  - DRUG INEFFECTIVE [None]
  - VERTIGO [None]
